FAERS Safety Report 5018169-7 (Version None)
Quarter: 2006Q2

REPORT INFORMATION
  Report Type: 
  Country: None (occurrence: None)
  Receive Date: 20060530
  Receipt Date: 20050301
  Transmission Date: 20061013
  Serious: Yes (Other)
  Sender: FDA-Public Use
  Company Number: 2004104916

PATIENT
  Age: 37 Year
  Sex: Female
  Weight: 75 kg

DRUGS (3)
  1. LYRICA [Suspect]
     Indication: EPILEPSY
     Dosage: 600 MG (1 IN 1 D), ORAL
     Route: 048
     Dates: start: 20040825, end: 20041119
  2. INSULIN [Concomitant]
  3. TOPAMAX [Concomitant]

REACTIONS (2)
  - BLOOD GLUCOSE ABNORMAL [None]
  - BLOOD INSULIN ABNORMAL [None]
